FAERS Safety Report 12905903 (Version 2)
Quarter: 2016Q4

REPORT INFORMATION
  Report Type: Spontaneous
  Country: IN (occurrence: IN)
  Receive Date: 20161103
  Receipt Date: 20161221
  Transmission Date: 20170207
  Serious: Yes (Other)
  Sender: FDA-Public Use
  Company Number: IN-SUN PHARMACEUTICAL INDUSTRIES LTD-2016R1-126730

PATIENT
  Age: 35 Year
  Sex: Male

DRUGS (2)
  1. IMATINIB [Suspect]
     Active Substance: IMATINIB
     Indication: ADENOID CYSTIC CARCINOMA
     Dosage: 400 MG, QD
     Route: 065
  2. CELECOXIB. [Suspect]
     Active Substance: CELECOXIB
     Indication: ADENOID CYSTIC CARCINOMA
     Dosage: 200 MG, BID
     Route: 065

REACTIONS (1)
  - Therapeutic response decreased [Unknown]
